FAERS Safety Report 18028228 (Version 1)
Quarter: 2020Q3

REPORT INFORMATION
  Report Type: Spontaneous
  Country: BE (occurrence: BE)
  Receive Date: 20200715
  Receipt Date: 20200715
  Transmission Date: 20201103
  Serious: Yes (Life-Threatening, Other)
  Sender: FDA-Public Use
  Company Number: BE-PFIZER INC-2020269088

PATIENT
  Age: 63 Year
  Sex: Male

DRUGS (12)
  1. METHYLPREDNISOLONE SODIUM SUCCINATE. [Suspect]
     Active Substance: METHYLPREDNISOLONE SODIUM SUCCINATE
     Dosage: 0.75 MG/KG, DAILY, (DECREASED THE DOSE), (80 MG)
     Route: 042
     Dates: start: 201902
  2. METHYLPREDNISOLONE SODIUM SUCCINATE. [Suspect]
     Active Substance: METHYLPREDNISOLONE SODIUM SUCCINATE
     Dosage: 16 MG, DAILY, (AFTER EIGHT WEEKS)
     Route: 042
     Dates: start: 201902
  3. METHYLPREDNISOLONE SODIUM SUCCINATE. [Suspect]
     Active Substance: METHYLPREDNISOLONE SODIUM SUCCINATE
     Dosage: 4 MG, DAILY, (AFTER TWELVE WEEKS)
     Route: 042
     Dates: start: 201902
  4. METHYLPREDNISOLONE SODIUM SUCCINATE. [Suspect]
     Active Substance: METHYLPREDNISOLONE SODIUM SUCCINATE
     Dosage: 1 MG/KG, DAILY, (120 MG), (INCREASE TO ORIGINAL DOSE)
     Route: 042
     Dates: start: 201902
  5. METHYLPREDNISOLONE SODIUM SUCCINATE. [Suspect]
     Active Substance: METHYLPREDNISOLONE SODIUM SUCCINATE
     Dosage: 1 MG/KG, DAILY, (120 MG)
     Route: 042
     Dates: start: 201902
  6. METHYLPREDNISOLONE SODIUM SUCCINATE. [Suspect]
     Active Substance: METHYLPREDNISOLONE SODIUM SUCCINATE
     Dosage: 0.25 MG/KG, DAILY, (32MG) AFTER 4 WEEKS FROM THE REMOVAL OF THE SERTRALINE
     Route: 042
     Dates: start: 201902
  7. METHYLPREDNISOLONE SODIUM SUCCINATE. [Suspect]
     Active Substance: METHYLPREDNISOLONE SODIUM SUCCINATE
     Dosage: 24 MG, DAILY, (REDUCED AFTER SIX WEEKS)
     Route: 042
     Dates: start: 201902
  8. METHYLPREDNISOLONE SODIUM SUCCINATE. [Suspect]
     Active Substance: METHYLPREDNISOLONE SODIUM SUCCINATE
     Dosage: 0.5 MG/KG, DAILY, (REDUCED AFTER 1 WEEK) (64 MG)
     Route: 042
     Dates: start: 201902
  9. METHYLPREDNISOLONE SODIUM SUCCINATE. [Suspect]
     Active Substance: METHYLPREDNISOLONE SODIUM SUCCINATE
     Dosage: 1 MG/KG, DAILY, (120 MG)
     Route: 042
     Dates: start: 201902
  10. SERTRALINE [Concomitant]
     Active Substance: SERTRALINE HYDROCHLORIDE
     Indication: DEPRESSION
     Dosage: 50 MG, 1X/DAY, (SINCE SEVERAL YEARS)
     Dates: start: 201902
  11. METHYLPREDNISOLONE SODIUM SUCCINATE. [Suspect]
     Active Substance: METHYLPREDNISOLONE SODIUM SUCCINATE
     Dosage: 0.5 MG/KG, DAILY, (DOSE DECREASED AFTER FOUR WEEKS), (60 MG)
     Route: 042
     Dates: start: 201902
  12. METHYLPREDNISOLONE SODIUM SUCCINATE. [Suspect]
     Active Substance: METHYLPREDNISOLONE SODIUM SUCCINATE
     Dosage: 8 MG, DAILY, (AFTER TEN WEEKS)
     Route: 042
     Dates: start: 201902

REACTIONS (2)
  - Drug ineffective [Unknown]
  - Respiratory failure [Unknown]

NARRATIVE: CASE EVENT DATE: 201902
